FAERS Safety Report 17233151 (Version 1)
Quarter: 2020Q1

REPORT INFORMATION
  Report Type: Spontaneous
  Country: US (occurrence: US)
  Receive Date: 20200104
  Receipt Date: 20200104
  Transmission Date: 20200409
  Serious: Yes (Other)
  Sender: FDA-Public Use
  Company Number: NVSC2020US000482

PATIENT
  Age: 66 Year
  Sex: Female

DRUGS (4)
  1. TAMOXIFEN [Suspect]
     Active Substance: TAMOXIFEN
     Indication: ENDOMETRIAL CANCER METASTATIC
     Route: 065
  2. MEGESTROL [Suspect]
     Active Substance: MEGESTROL
     Indication: ENDOMETRIAL CANCER METASTATIC
     Route: 065
  3. CARBOPLATIN. [Suspect]
     Active Substance: CARBOPLATIN
     Indication: ENDOMETRIAL CANCER METASTATIC
     Dosage: SIX CYCLIC
     Route: 065
  4. PACLITAXEL. [Suspect]
     Active Substance: PACLITAXEL
     Indication: ENDOMETRIAL CANCER METASTATIC
     Dosage: SIX CYCLIC
     Route: 065

REACTIONS (5)
  - Metastases to lung [Unknown]
  - Product use in unapproved indication [Unknown]
  - Metastases to bone [Unknown]
  - Malignant neoplasm progression [Unknown]
  - Endometrial cancer metastatic [Unknown]
